FAERS Safety Report 18877503 (Version 1)
Quarter: 2021Q1

REPORT INFORMATION
  Report Type: Spontaneous
  Country: US (occurrence: US)
  Receive Date: 20210210
  Receipt Date: 20210210
  Transmission Date: 20210420
  Serious: No
  Sender: FDA-Public Use
  Company Number: None

PATIENT
  Age: 56 Year
  Sex: Female

DRUGS (2)
  1. BUPROPION XL [Suspect]
     Active Substance: BUPROPION
     Indication: MAJOR DEPRESSION
  2. BUPROPION SR [Suspect]
     Active Substance: BUPROPION HYDROCHLORIDE
     Indication: MAJOR DEPRESSION

REACTIONS (1)
  - Therapy non-responder [None]
